FAERS Safety Report 18208292 (Version 1)
Quarter: 2020Q3

REPORT INFORMATION
  Report Type: Spontaneous
  Country: US (occurrence: US)
  Receive Date: 20200828
  Receipt Date: 20200828
  Transmission Date: 20201103
  Serious: Yes (Other)
  Sender: FDA-Public Use
  Company Number: None

PATIENT
  Age: 18 Year
  Sex: Male
  Weight: 79 kg

DRUGS (9)
  1. ALBUTEROL SULFATE. [Concomitant]
     Active Substance: ALBUTEROL SULFATE
  2. AQUADEKS [Concomitant]
     Active Substance: MINERALS\VITAMINS
  3. LANTUS [Concomitant]
     Active Substance: INSULIN GLARGINE
  4. SODIUM CHLORIDE 7% [Concomitant]
     Active Substance: SODIUM CHLORIDE
  5. RETIN A TOPICAL GEL [Concomitant]
  6. TRIKAFTA [Suspect]
     Active Substance: ELEXACAFTOR\IVACAFTOR\TEZACAFTOR
     Indication: CYSTIC FIBROSIS
     Route: 048
     Dates: start: 20200106, end: 20200523
  7. CREON 36 [Concomitant]
  8. CHOLECALCIFEROL [Concomitant]
     Active Substance: CHOLECALCIFEROL
  9. DORNASE ALFA. [Concomitant]
     Active Substance: DORNASE ALFA

REACTIONS (3)
  - Hepatic enzyme increased [None]
  - Forced expiratory volume decreased [None]
  - Pulmonary function test decreased [None]

NARRATIVE: CASE EVENT DATE: 20200501
